FAERS Safety Report 6423430-5 (Version None)
Quarter: 2009Q4

REPORT INFORMATION
  Report Type: 
  Country: None (occurrence: None)
  Receive Date: 20091102
  Receipt Date: 20091022
  Transmission Date: 20100525
  Serious: Yes (Congenital Anomaly)
  Sender: FDA-Public Use
  Company Number: B0447298A

PATIENT

DRUGS (6)
  1. KIVEXA [Suspect]
     Indication: ANTIVIRAL TREATMENT
  2. NEVIRAPINE [Suspect]
     Indication: ANTIVIRAL TREATMENT
     Dosage: 400MG PER DAY
  3. NORVIR [Suspect]
     Indication: ANTIVIRAL TREATMENT
     Dosage: 200MG PER DAY
     Dates: start: 20060411
  4. LAMIVUDINE [Suspect]
     Indication: ANTIVIRAL TREATMENT
     Dosage: 2MG PER DAY
     Dates: start: 20060411
  5. ZIDOVUDINE [Suspect]
     Indication: ANTIVIRAL TREATMENT
     Dates: start: 20060411
  6. INVIRASE [Suspect]
     Indication: ANTIVIRAL TREATMENT
     Dosage: 2000MG PER DAY
     Dates: start: 20060411

REACTIONS (2)
  - ALPHA 1 FOETOPROTEIN INCREASED [None]
  - DRUG EXPOSURE DURING PREGNANCY [None]
